FAERS Safety Report 10145652 (Version 1)
Quarter: 2014Q2

REPORT INFORMATION
  Report Type: Spontaneous
  Country: IT (occurrence: IT)
  Receive Date: 20140501
  Receipt Date: 20140501
  Transmission Date: 20141212
  Serious: Yes (Death)
  Sender: FDA-Public Use
  Company Number: PHHY2014IT050637

PATIENT
  Age: 43 Year
  Sex: Male

DRUGS (8)
  1. OCTREOTIDE [Suspect]
     Indication: PITUITARY TUMOUR BENIGN
     Dosage: 0.1 MG, BID
     Route: 058
  2. OCTREOTIDE [Suspect]
     Indication: POLYCYTHAEMIA
     Dosage: 0.2 MG, BID
  3. OCTREOTIDE [Suspect]
     Indication: OFF LABEL USE
     Dosage: 0.2 MG, TID
  4. OCTREOTIDE [Suspect]
     Dosage: 0.5 MG, TID
  5. CABERGOLINE [Concomitant]
     Indication: PITUITARY TUMOUR BENIGN
     Dosage: 2 MG, PER WEEK
  6. CABERGOLINE [Concomitant]
     Dosage: 3 MG, PER WEEK
  7. CABERGOLINE [Concomitant]
     Dosage: 4 MG, PER WEEK
  8. HEPARIN [Concomitant]
     Indication: THROMBOSIS

REACTIONS (3)
  - Intracranial pressure increased [Fatal]
  - Intraventricular haemorrhage [Fatal]
  - Drug ineffective for unapproved indication [Unknown]
